FAERS Safety Report 17315453 (Version 6)
Quarter: 2020Q3

REPORT INFORMATION
  Report Type: Report from Study
  Country: CO (occurrence: CO)
  Receive Date: 20200124
  Receipt Date: 20200720
  Transmission Date: 20201102
  Serious: Yes (Hospitalization, Other)
  Sender: FDA-Public Use
  Company Number: CO-AMGEN-COLSL2018148294

PATIENT
  Age: 68 Year
  Sex: Female

DRUGS (9)
  1. VECTIBIX [Suspect]
     Active Substance: PANITUMUMAB
     Dosage: 335 MILLIGRAM, Q2WK
     Route: 042
     Dates: start: 2020
  2. ARTIFICIAL TEARS (POLYVINYL ALCOHOL) [Concomitant]
     Active Substance: POLYVINYL ALCOHOL
     Dosage: UNK, TID (APPY 1 DROP EACH EYE THREE TIMES A DAY OR MORE FREQUENTLY FOLLOWING THE SYMPTOMS)
     Dates: start: 20191220
  3. VECTIBIX [Suspect]
     Active Substance: PANITUMUMAB
     Dosage: 335 MILLIGRAM, Q2WK
     Route: 042
     Dates: start: 20200212, end: 20200227
  4. VECTIBIX [Suspect]
     Active Substance: PANITUMUMAB
     Dosage: 336 MILLIGRAM, Q2WK
     Route: 042
     Dates: start: 20190102, end: 2019
  5. VECTIBIX [Suspect]
     Active Substance: PANITUMUMAB
     Dosage: 335 MILLIGRAM, Q2WK
     Route: 042
     Dates: start: 20200324
  6. VECTIBIX [Suspect]
     Active Substance: PANITUMUMAB
     Dosage: 335 MILLIGRAM, Q2WK
     Route: 042
     Dates: start: 20191209
  7. VECTIBIX [Suspect]
     Active Substance: PANITUMUMAB
     Dosage: 336 MILLIGRAM, Q2WK
     Route: 042
     Dates: start: 20181205, end: 20181205
  8. VECTIBIX [Suspect]
     Active Substance: PANITUMUMAB
     Indication: COLORECTAL CANCER METASTATIC
     Dosage: 336 MILLIGRAM, Q2WK
     Route: 042
     Dates: start: 20180828, end: 20180918
  9. VECTIBIX [Suspect]
     Active Substance: PANITUMUMAB
     Dosage: 360 MILLIGRAM, Q2WK
     Route: 042
     Dates: start: 20190812

REACTIONS (8)
  - Dry skin [Recovering/Resolving]
  - Thrombocytopenia [Not Recovered/Not Resolved]
  - White blood cell count increased [Not Recovered/Not Resolved]
  - Leukopenia [Not Recovered/Not Resolved]
  - Hepatic cancer [Unknown]
  - Skin fissures [Recovering/Resolving]
  - Platelet count increased [Not Recovered/Not Resolved]
  - Rash [Recovering/Resolving]

NARRATIVE: CASE EVENT DATE: 2018
